FAERS Safety Report 9994988 (Version 1)
Quarter: 2014Q1

REPORT INFORMATION
  Report Type: Spontaneous
  Country: US (occurrence: None)
  Receive Date: 20140307
  Receipt Date: 20140307
  Transmission Date: 20141002
  Serious: Yes (Other)
  Sender: FDA-Public Use
  Company Number: None

PATIENT
  Age: 69 Year
  Sex: Female
  Weight: 61.69 kg

DRUGS (5)
  1. PHENOBARBITAL [Suspect]
     Indication: CONVULSION
     Route: 048
     Dates: start: 20131020, end: 20131020
  2. PHENOBARBITAL [Suspect]
     Indication: EPILEPSY
     Route: 048
     Dates: start: 20131020, end: 20131020
  3. TERRETOL XL [Concomitant]
  4. PHENOBARBITAL [Concomitant]
  5. CLONAZEPAM [Concomitant]

REACTIONS (4)
  - Headache [None]
  - Activities of daily living impaired [None]
  - Somnolence [None]
  - Feeling abnormal [None]
